FAERS Safety Report 24537433 (Version 1)
Quarter: 2024Q4

REPORT INFORMATION
  Report Type: Spontaneous
  Country: CA (occurrence: CA)
  Receive Date: 20241022
  Receipt Date: 20241022
  Transmission Date: 20250114
  Serious: Yes (Other)
  Sender: ORGANON
  Company Number: CA-ORGANON-O2410CAN001696

PATIENT
  Age: 5 Year
  Sex: Female

DRUGS (2)
  1. SINGULAIR [Suspect]
     Active Substance: MONTELUKAST SODIUM
     Indication: Asthma
     Dosage: 4 MILLIGRAM, 1 EVERY 1 DAYS
     Route: 048
  2. ZENHALE [Concomitant]
     Active Substance: FORMOTEROL FUMARATE\MOMETASONE FUROATE
     Dosage: AEROSOL, METERED DOSE

REACTIONS (7)
  - Agitation [Unknown]
  - Crying [Unknown]
  - Feeling jittery [Unknown]
  - Middle insomnia [Unknown]
  - Neuropsychological symptoms [Unknown]
  - Nightmare [Unknown]
  - Personality change [Unknown]
